FAERS Safety Report 18301392 (Version 1)
Quarter: 2020Q3

REPORT INFORMATION
  Report Type: Spontaneous
  Country: US (occurrence: US)
  Receive Date: 20200923
  Receipt Date: 20200923
  Transmission Date: 20201103
  Serious: No
  Sender: FDA-Public Use
  Company Number: US-RECKITT BENCKISER HEALTHCARE INT LIMITED-RB-86074-2020

PATIENT
  Age: 87 Year
  Sex: Male

DRUGS (1)
  1. MUCINEX [Suspect]
     Active Substance: GUAIFENESIN
     Indication: RESPIRATORY TRACT CONGESTION
     Dosage: TOOK 16 TABLETS IN 8 DAYS
     Route: 065
     Dates: start: 202003

REACTIONS (2)
  - Incorrect product administration duration [Unknown]
  - Therapeutic product ineffective for unapproved indication [Not Recovered/Not Resolved]
